FAERS Safety Report 4475373-4 (Version None)
Quarter: 2004Q4

REPORT INFORMATION
  Report Type: 
  Country: None (occurrence: None)
  Receive Date: 20041015
  Receipt Date: 20041005
  Transmission Date: 20050328
  Serious: Yes (Hospitalization)
  Sender: FDA-Public Use
  Company Number: BE-JNJFOC-20040908977

PATIENT
  Age: 4 Month
  Sex: Male
  Weight: 4.5 kg

DRUGS (2)
  1. PROPULSID [Suspect]
     Route: 049
     Dates: start: 20040701
  2. PROPULSID [Suspect]
     Route: 049
     Dates: start: 20040701

REACTIONS (4)
  - DECREASED APPETITE [None]
  - DYSPNOEA [None]
  - VIRAL UPPER RESPIRATORY TRACT INFECTION [None]
  - VOMITING [None]
